FAERS Safety Report 20906592 (Version 1)
Quarter: 2022Q2

REPORT INFORMATION
  Report Type: Spontaneous
  Country: US (occurrence: US)
  Receive Date: 20220602
  Receipt Date: 20220602
  Transmission Date: 20220720
  Serious: No
  Sender: FDA-Public Use
  Company Number: US-BRISTOL-MYERS SQUIBB COMPANY-2022-050913

PATIENT
  Age: 77 Year
  Sex: Male

DRUGS (1)
  1. REVLIMID [Suspect]
     Active Substance: LENALIDOMIDE
     Indication: Malignant neoplasm of spinal cord
     Dosage: FREQ- TAKE 1 CAPSULE BY MOUTH DAILY FOR 14 DAYS FOLLOWED BY 7 DAYS OFF.

REACTIONS (1)
  - Product dose omission issue [Unknown]
